FAERS Safety Report 9502018 (Version 2)
Quarter: 2013Q3

REPORT INFORMATION
  Report Type: Report from Study
  Country: US (occurrence: US)
  Receive Date: 20130905
  Receipt Date: 20130905
  Transmission Date: 20140515
  Serious: Yes (Other)
  Sender: FDA-Public Use
  Company Number: US-BAXTER-2013BAX033855

PATIENT
  Age: 53 Year
  Sex: Female
  Weight: 81.82 kg

DRUGS (16)
  1. ARALAST NP [Suspect]
     Indication: ALPHA-1 ANTI-TRYPSIN DEFICIENCY
     Route: 042
     Dates: start: 201211
  2. XARELTO [Concomitant]
     Indication: PRODUCT USED FOR UNKNOWN INDICATION
     Route: 065
  3. DILAUDID [Concomitant]
     Indication: PAIN
     Route: 065
  4. ROBAXIN [Concomitant]
     Indication: PRODUCT USED FOR UNKNOWN INDICATION
     Route: 065
  5. ZYRTEC [Concomitant]
     Indication: PRODUCT USED FOR UNKNOWN INDICATION
     Route: 065
  6. SINGULAIR [Concomitant]
     Indication: PRODUCT USED FOR UNKNOWN INDICATION
     Route: 065
  7. MAXALT [Concomitant]
     Indication: HEMIPLEGIC MIGRAINE
     Route: 065
  8. RANEXA [Concomitant]
     Indication: CARDIAC DISORDER
     Route: 065
  9. XANAX [Concomitant]
     Indication: PRODUCT USED FOR UNKNOWN INDICATION
     Route: 065
  10. CELEXA [Concomitant]
     Indication: DEPRESSION
     Route: 065
  11. TOPAMAX [Concomitant]
     Indication: HEMIPLEGIC MIGRAINE
     Dosage: 150 MG
     Route: 065
  12. LEVOTHYROXINE [Concomitant]
     Indication: PRODUCT USED FOR UNKNOWN INDICATION
     Route: 065
  13. ZOFRAN [Concomitant]
     Indication: NAUSEA
     Route: 065
  14. LASIX [Concomitant]
     Indication: LOCAL SWELLING
     Route: 065
  15. COLCRYS [Concomitant]
     Indication: GOUT
     Route: 065
  16. PREDNISONE [Concomitant]
     Indication: DYSPNOEA
     Route: 065

REACTIONS (8)
  - Immune system disorder [Not Recovered/Not Resolved]
  - Device malfunction [Recovered/Resolved]
  - Diverticulitis [Not Recovered/Not Resolved]
  - Haemorrhoids [Not Recovered/Not Resolved]
  - Fatigue [Not Recovered/Not Resolved]
  - Liver function test abnormal [Not Recovered/Not Resolved]
  - Condition aggravated [Not Recovered/Not Resolved]
  - Decreased appetite [Not Recovered/Not Resolved]
